FAERS Safety Report 24453501 (Version 1)
Quarter: 2024Q4

REPORT INFORMATION
  Report Type: Spontaneous
  Country: CN (occurrence: CN)
  Receive Date: 20241017
  Receipt Date: 20241017
  Transmission Date: 20250114
  Serious: Yes (Hospitalization)
  Sender: ROCHE
  Company Number: CN-BoehringerIngelheim-2024-BI-056993

PATIENT
  Age: 75 Year
  Sex: Male
  Weight: 52.0 kg

DRUGS (1)
  1. ALTEPLASE [Suspect]
     Active Substance: ALTEPLASE
     Indication: Cerebral infarction
     Route: 042
     Dates: start: 20241011, end: 20241011

REACTIONS (3)
  - Cerebral haemorrhage [Unknown]
  - Facial paralysis [Unknown]
  - Dysarthria [Unknown]

NARRATIVE: CASE EVENT DATE: 20241012
